FAERS Safety Report 11240620 (Version 1)
Quarter: 2015Q3

REPORT INFORMATION
  Report Type: Spontaneous
  Country: US (occurrence: None)
  Receive Date: 20150701
  Receipt Date: 20150701
  Transmission Date: 20151125
  Serious: Yes (Other)
  Sender: FDA-Public Use
  Company Number: None

PATIENT
  Age: 79 Year
  Sex: Male
  Weight: 81 kg

DRUGS (1)
  1. OXALIPLATIN. [Suspect]
     Active Substance: OXALIPLATIN
     Indication: COLON CANCER
     Dates: start: 20121004, end: 20121004

REACTIONS (8)
  - Dizziness [None]
  - Paraesthesia [None]
  - Cough [None]
  - Dysphonia [None]
  - Muscle twitching [None]
  - Dysphagia [None]
  - Muscle spasms [None]
  - Abasia [None]

NARRATIVE: CASE EVENT DATE: 20121004
